FAERS Safety Report 6335759-X (Version None)
Quarter: 2009Q3

REPORT INFORMATION
  Report Type: 
  Country: None (occurrence: None)
  Receive Date: 20090828
  Receipt Date: 20090813
  Transmission Date: 20100115
  Serious: Yes (Hospitalization)
  Sender: FDA-Public Use
  Company Number: 2009002453

PATIENT
  Age: 56 Year
  Sex: Male
  Weight: 69.3 kg

DRUGS (11)
  1. ERLOTINIB HYDROCHLORIDE [Suspect]
     Indication: OESOPHAGEAL ADENOCARCINOMA
     Dosage: 100 MG, QD, ORAL, 100 MG, QD, ORAL
     Route: 048
     Dates: start: 20090728, end: 20090807
  2. ERLOTINIB HYDROCHLORIDE [Suspect]
     Indication: OESOPHAGEAL ADENOCARCINOMA
     Dosage: 100 MG, QD, ORAL, 100 MG, QD, ORAL
     Route: 048
     Dates: start: 20090812
  3. BEVACIZUMAB (INJECTION FOR INFUSION) [Suspect]
     Indication: OESOPHAGEAL ADENOCARCINOMA
     Dosage: 1068 MG, INTRAVENOUS
     Route: 042
     Dates: start: 20090728, end: 20090807
  4. PACLITAXEL [Suspect]
     Indication: OESOPHAGEAL ADENOCARCINOMA
     Dosage: 384 MG
     Dates: start: 20090728
  5. CARBOPLATIN [Suspect]
     Indication: OESOPHAGEAL ADENOCARCINOMA
     Dosage: 817 MG, INTRAVENOUS
     Route: 042
     Dates: start: 20090728
  6. FLUOROURACIL [Suspect]
     Indication: OESOPHAGEAL ADENOCARCINOMA
     Dosage: 225 MG/M2
     Dates: start: 20090728
  7. KAPIDEX [Concomitant]
  8. ZOFRAN [Concomitant]
  9. PROMETHAZINE [Concomitant]
  10. REGLAN [Concomitant]
  11. BENADRYL W MAALOX [Concomitant]

REACTIONS (1)
  - FEBRILE NEUTROPENIA [None]
